FAERS Safety Report 8733687 (Version 2)
Quarter: 2012Q4

REPORT INFORMATION
  Report Type: 
  Country: US (occurrence: US)
  Receive Date: 20120821
  Receipt Date: 20121009
  Transmission Date: 20130627
  Serious: Yes (Death, Life-Threatening)
  Sender: FDA-Public Use
  Company Number: PHEH2012US016304

PATIENT
  Age: 82 Year
  Sex: Female
  Weight: 63.49 kg

DRUGS (1)
  1. RECLAST [Suspect]
     Route: 042

REACTIONS (1)
  - Haemorrhagic stroke [Fatal]
